FAERS Safety Report 8912969 (Version 1)
Quarter: 2012Q4

REPORT INFORMATION
  Report Type: 
  Country: US (occurrence: US)
  Receive Date: 20121116
  Receipt Date: 20121116
  Transmission Date: 20130627
  Serious: Yes (Other)
  Sender: FDA-Public Use
  Company Number: US-ROCHE-1155825

PATIENT
  Age: 49 Year
  Sex: Male

DRUGS (3)
  1. SOMATROPIN [Suspect]
     Indication: PRODUCT USED FOR UNKNOWN INDICATION
     Route: 058
  2. SOMATROPIN [Suspect]
     Indication: OFF LABEL USE
  3. TESTOSTERONE [Concomitant]

REACTIONS (1)
  - Malignant melanoma [Unknown]
